FAERS Safety Report 4303776-7 (Version None)
Quarter: 2004Q1

REPORT INFORMATION
  Report Type: 
  Country: None (occurrence: None)
  Receive Date: 20040225
  Receipt Date: 20040217
  Transmission Date: 20041129
  Serious: Yes (Other)
  Sender: FDA-Public Use
  Company Number: PHBS2004US02435

PATIENT
  Age: 43 Year
  Sex: Female

DRUGS (3)
  1. CYCLOSPORINE [Suspect]
     Indication: LUNG TRANSPLANT
     Dosage: 225 MG/D
     Route: 065
  2. PREDNISONE [Suspect]
     Route: 065
  3. IMMUNOSUPPRESSIVE AGENTS [Concomitant]
     Route: 065

REACTIONS (4)
  - BREAST CYST [None]
  - BREAST MASS [None]
  - FIBROADENOMA OF BREAST [None]
  - PSEUDOMONAS INFECTION [None]
